FAERS Safety Report 8524160-6 (Version None)
Quarter: 2012Q3

REPORT INFORMATION
  Report Type: 
  Country: None (occurrence: None)
  Receive Date: 20120720
  Receipt Date: 20120713
  Transmission Date: 20120928
  Serious: Yes (Other)
  Sender: FDA-Public Use
  Company Number: US-PFIZER INC-2012150399

PATIENT
  Sex: Male
  Weight: 90.703 kg

DRUGS (6)
  1. TOVIAZ [Interacting]
     Indication: MICTURITION DISORDER
     Dosage: 4 MG, 1X/DAY AT NIGHT
     Dates: start: 20120619
  2. FLOMAX [Interacting]
     Dosage: UNK
     Dates: start: 20120601
  3. GLIPIZIDE [Concomitant]
     Indication: TYPE 2 DIABETES MELLITUS
     Dosage: UNK
  4. FLOMAX [Interacting]
     Indication: PROSTATIC DISORDER
     Dosage: UNK, 2X/DAY
  5. VESICARE [Suspect]
     Indication: MICTURITION DISORDER
     Dosage: 5 MG, 1X/DAY
     Dates: start: 20120601, end: 20120619
  6. METFORMIN [Concomitant]
     Indication: TYPE 2 DIABETES MELLITUS
     Dosage: UNK

REACTIONS (5)
  - DRUG INTERACTION [None]
  - DRUG INEFFECTIVE [None]
  - URINARY RETENTION [None]
  - BENIGN PROSTATIC HYPERPLASIA [None]
  - PAIN [None]
